FAERS Safety Report 8434753-2 (Version None)
Quarter: 2012Q2

REPORT INFORMATION
  Report Type: 
  Country: None (occurrence: None)
  Receive Date: 20120323
  Receipt Date: 20110630
  Transmission Date: 20120825
  Serious: Yes (Other)
  Sender: FDA-Public Use
  Company Number: 163-21880-11070546

PATIENT
  Age: 71 Year
  Sex: Male

DRUGS (3)
  1. HUMALOG (INSULIN LISPRO) (UNKNOWN) [Concomitant]
  2. LANTUS [Concomitant]
  3. REVLIMID [Suspect]
     Indication: MULTIPLE MYELOMA
     Dosage: 10 MG, DAILY X 14 DAYS, PO
     Route: 048
     Dates: start: 20110101, end: 20110101

REACTIONS (2)
  - MYOCARDIAL INFARCTION [None]
  - ASTHENIA [None]
